FAERS Safety Report 12859089 (Version 1)
Quarter: 2016Q4

REPORT INFORMATION
  Report Type: Spontaneous
  Country: PT (occurrence: PT)
  Receive Date: 20161018
  Receipt Date: 20161018
  Transmission Date: 20170207
  Serious: Yes (Hospitalization)
  Sender: FDA-Public Use
  Company Number: PT-IPCA LABORATORIES LIMITED-IPC201610-000848

PATIENT
  Age: 64 Year
  Sex: Female

DRUGS (12)
  1. RIFAMPIN. [Suspect]
     Active Substance: RIFAMPIN
     Indication: TUBERCULOSIS
     Dates: start: 201505, end: 20150716
  2. ETHAMBUTOL [Suspect]
     Active Substance: ETHAMBUTOL HYDROCHLORIDE
     Indication: TUBERCULOSIS
     Dates: start: 201505, end: 20150716
  3. ISONIAZID. [Suspect]
     Active Substance: ISONIAZID
     Indication: TUBERCULOSIS
     Dates: start: 201505, end: 20150716
  4. ALLOPURINOL. [Suspect]
     Active Substance: ALLOPURINOL
     Indication: HYPERURICAEMIA
     Dates: start: 201506
  5. ISONIAZID. [Suspect]
     Active Substance: ISONIAZID
  6. ETHAMBUTOL [Suspect]
     Active Substance: ETHAMBUTOL HYDROCHLORIDE
     Dates: start: 20150911
  7. ETHAMBUTOL [Suspect]
     Active Substance: ETHAMBUTOL HYDROCHLORIDE
  8. RIFAMPIN. [Suspect]
     Active Substance: RIFAMPIN
     Dates: start: 20150903, end: 20150911
  9. PYRAZINAMIDE. [Concomitant]
     Active Substance: PYRAZINAMIDE
     Indication: TUBERCULOSIS
     Dates: start: 201505, end: 201507
  10. RIFAMPIN. [Suspect]
     Active Substance: RIFAMPIN
  11. PYRAZINAMIDE. [Concomitant]
     Active Substance: PYRAZINAMIDE
  12. ISONIAZID. [Suspect]
     Active Substance: ISONIAZID
     Dates: start: 20150911

REACTIONS (1)
  - Drug reaction with eosinophilia and systemic symptoms [Recovered/Resolved]
